FAERS Safety Report 7943558-8 (Version None)
Quarter: 2011Q4

REPORT INFORMATION
  Report Type: 
  Country: None (occurrence: None)
  Receive Date: 20111128
  Receipt Date: 20111118
  Transmission Date: 20120403
  Serious: Yes (Hospitalization, Other)
  Sender: FDA-Public Use
  Company Number: PHHY2011US102040

PATIENT
  Age: 48 Year
  Sex: Male

DRUGS (3)
  1. NEBIVOLOL HCL [Suspect]
  2. BACLOFEN [Suspect]
  3. DIAZEPAM [Suspect]

REACTIONS (9)
  - TOXICITY TO VARIOUS AGENTS [None]
  - HYPOTENSION [None]
  - CARDIAC ARREST [None]
  - INTENTIONAL OVERDOSE [None]
  - INCORRECT DOSE ADMINISTERED [None]
  - CARDIOGENIC SHOCK [None]
  - BLOOD POTASSIUM DECREASED [None]
  - BLOOD GLUCOSE INCREASED [None]
  - BRADYCARDIA [None]
